FAERS Safety Report 9412042 (Version 3)
Quarter: 2013Q3

REPORT INFORMATION
  Report Type: Spontaneous
  Country: CA (occurrence: CA)
  Receive Date: 20130722
  Receipt Date: 20130916
  Transmission Date: 20140515
  Serious: Yes (Other)
  Sender: FDA-Public Use
  Company Number: CA-JNJFOC-20100702969

PATIENT
  Age: 17 Year
  Sex: Female

DRUGS (8)
  1. DARUNAVIR [Suspect]
     Indication: HIV INFECTION
     Route: 065
  2. ETRAVIRINE [Suspect]
     Indication: HIV INFECTION
     Route: 065
  3. TENOFOVIR [Suspect]
     Indication: HIV INFECTION
     Route: 065
  4. RITONAVIR [Suspect]
     Indication: HIV INFECTION
     Route: 065
  5. AMLODIPINE [Suspect]
     Indication: HYPERTENSION
     Route: 065
  6. MONOPRIL [Suspect]
     Indication: ESSENTIAL HYPERTENSION
     Route: 065
  7. ABACAVIR W/LAMIVUDINE/ZIDOVUDINE [Suspect]
     Indication: HIV INFECTION
     Dosage: LAMIVUDINE/ZIDOVUDINE/ABACAVIR (150/300/300 MG TWICE A DAY)
     Route: 065
  8. RALTEGRAVIR [Concomitant]
     Indication: HIV INFECTION

REACTIONS (5)
  - Pneumonia pneumococcal [Unknown]
  - Streptococcal bacteraemia [Unknown]
  - Exposure during pregnancy [Recovered/Resolved]
  - Drug ineffective [Unknown]
  - Treatment noncompliance [Unknown]
